FAERS Safety Report 25974665 (Version 1)
Quarter: 2025Q4

REPORT INFORMATION
  Report Type: Spontaneous
  Country: CN (occurrence: CN)
  Receive Date: 20251029
  Receipt Date: 20251029
  Transmission Date: 20260118
  Serious: Yes (Other)
  Sender: PFIZER
  Company Number: CN-PFIZER INC-PV202500126608

PATIENT
  Age: 29 Year
  Sex: Female

DRUGS (1)
  1. MEROPENEM [Suspect]
     Active Substance: MEROPENEM
     Indication: Pneumonia
     Dosage: 1 G, 1X/DAY
     Route: 041
     Dates: start: 20251008, end: 20251010

REACTIONS (5)
  - Purpura [Recovering/Resolving]
  - Drug eruption [Recovering/Resolving]
  - Abdominal pain lower [Recovering/Resolving]
  - Abdominal pain [Recovering/Resolving]
  - Pruritus [Unknown]

NARRATIVE: CASE EVENT DATE: 20251009
